FAERS Safety Report 6464751-X (Version None)
Quarter: 2009Q4

REPORT INFORMATION
  Report Type: 
  Country: None (occurrence: None)
  Receive Date: 20091124
  Receipt Date: 20091113
  Transmission Date: 20100525
  Serious: Yes (Hospitalization)
  Sender: FDA-Public Use
  Company Number: 231816J09USA

PATIENT
  Age: 56 Year
  Sex: Female
  Weight: 80 kg

DRUGS (16)
  1. REBIF [Suspect]
     Indication: MULTIPLE SCLEROSIS
     Dosage: 44 MCG, 3 IN 1 WEEKS, SUBCUTANEOUS
     Route: 058
     Dates: start: 20031017, end: 20090601
  2. MULTIVITAMIN (MULTIVITAMIN) [Concomitant]
  3. ASPIRIN [Concomitant]
  4. DOXEPIN HCL [Concomitant]
  5. VYTORIN [Concomitant]
  6. PRINZIDE [Concomitant]
  7. PREMPRO (PROVELLA-14) [Concomitant]
  8. ATENOLOL [Concomitant]
  9. GABAPENTIN [Concomitant]
  10. PIROXICAM [Concomitant]
  11. ZOLPIDEM [Concomitant]
  12. CLONAZEPAM [Concomitant]
  13. AMITRIPTYLINE HYDROCHLORIDE [Concomitant]
  14. OMEPRAZOLE [Concomitant]
  15. AMANTADINE HCL [Concomitant]
  16. AVONEX [Concomitant]

REACTIONS (4)
  - BLOOD GLUCOSE INCREASED [None]
  - CELLULITIS [None]
  - GAIT DISTURBANCE [None]
  - SCAB [None]
